FAERS Safety Report 6872769-8 (Version None)
Quarter: 2010Q3

REPORT INFORMATION
  Report Type: 
  Country: None (occurrence: None)
  Receive Date: 20100723
  Receipt Date: 20081217
  Transmission Date: 20110219
  Serious: Yes (Other)
  Sender: FDA-Public Use
  Company Number: US-PFIZER INC-2008091062

PATIENT
  Sex: Male
  Weight: 86.621 kg

DRUGS (7)
  1. CHANTIX [Suspect]
     Indication: SMOKING CESSATION THERAPY
     Dosage: 1 MG, 2X/DAY
     Route: 048
     Dates: start: 20080901, end: 20081001
  2. WELLBUTRIN SR [Suspect]
     Indication: DEPRESSION
     Dosage: UNK MG, UNK
     Route: 048
  3. ACETYLSALICYLIC ACID [Concomitant]
     Dosage: 81 MG, 1X/DAY
  4. LORAZEPAM [Concomitant]
     Dosage: 1 MG, 3X/DAY
  5. PIROXICAM [Concomitant]
     Dosage: 20 MG, 1X/DAY
  6. SIMVASTATIN [Concomitant]
     Dosage: 40 MG, 1X/DAY
  7. PROZAC [Concomitant]
     Dosage: 40 MG, 1X/DAY

REACTIONS (1)
  - CONVULSION [None]
